FAERS Safety Report 25467812 (Version 1)
Quarter: 2025Q2

REPORT INFORMATION
  Report Type: Spontaneous
  Country: US (occurrence: US)
  Receive Date: 20250623
  Receipt Date: 20250623
  Transmission Date: 20250716
  Serious: Yes (Other)
  Sender: Kenvue
  Company Number: US-KENVUE-20250606349

PATIENT
  Age: 3 Year
  Sex: Male

DRUGS (1)
  1. TYLENOL EXTRA STRENGTH [Suspect]
     Active Substance: ACETAMINOPHEN
     Indication: Accidental exposure to product
     Route: 065

REACTIONS (3)
  - Drug level increased [Recovered/Resolved]
  - Vomiting [Recovered/Resolved]
  - Accidental exposure to product by child [Unknown]
